FAERS Safety Report 10347001 (Version 1)
Quarter: 2014Q3

REPORT INFORMATION
  Report Type: Spontaneous
  Country: FR (occurrence: FR)
  Receive Date: 20140729
  Receipt Date: 20140729
  Transmission Date: 20150326
  Serious: Yes (Other)
  Sender: FDA-Public Use
  Company Number: FR-MERCK-1407FRA009868

PATIENT
  Age: 44 Year
  Sex: Female

DRUGS (2)
  1. NOXAFIL [Suspect]
     Active Substance: POSACONAZOLE
     Dosage: 200 MG, TID
     Route: 048
     Dates: start: 20140616, end: 20140623
  2. NEORAL [Suspect]
     Active Substance: CYCLOSPORINE
     Dosage: 120 MG, BID
     Route: 048
     Dates: start: 20140620, end: 20140622

REACTIONS (1)
  - Overdose [Recovered/Resolved]

NARRATIVE: CASE EVENT DATE: 20140622
